FAERS Safety Report 6257344-0 (Version None)
Quarter: 2009Q3

REPORT INFORMATION
  Report Type: 
  Country: None (occurrence: None)
  Receive Date: 20090706
  Receipt Date: 20090626
  Transmission Date: 20100115
  Serious: Yes (Hospitalization)
  Sender: FDA-Public Use
  Company Number: PHHO2009DK07559

PATIENT
  Sex: Female

DRUGS (1)
  1. RAD 666 RAD+TAB [Suspect]
     Indication: LIVER TRANSPLANT
     Dosage: 2.5 MG, BID
     Route: 048
     Dates: end: 20090330

REACTIONS (2)
  - BLOOD CREATININE INCREASED [None]
  - KIDNEY TRANSPLANT REJECTION [None]
